FAERS Safety Report 4391686-9 (Version None)
Quarter: 2004Q3

REPORT INFORMATION
  Report Type: 
  Country: None (occurrence: None)
  Receive Date: 20040701
  Receipt Date: 20040621
  Transmission Date: 20050211
  Serious: Yes (Death, Hospitalization)
  Sender: FDA-Public Use
  Company Number: 163-20785-04060503

PATIENT
  Age: 73 Year
  Sex: Female

DRUGS (5)
  1. THALOMID [Suspect]
     Indication: GLIOMA
     Dosage: 100MG ESCALATED TO 400MG, DAILY, ORAL
     Route: 048
     Dates: start: 20040603, end: 20040609
  2. CPT-11 (IRINOTECAN) [Suspect]
     Indication: GLIOMA
     Dosage: 208 MG, QWK X 4 WEEKS THEN 2 WEEKS OFF, INTRAVENOUS
     Route: 042
     Dates: start: 20040603, end: 20040609
  3. DECADRON [Concomitant]
  4. LIPITOR [Concomitant]
  5. CALCIUM (CALCIUM) [Concomitant]

REACTIONS (3)
  - MULTI-ORGAN FAILURE [None]
  - NEUTROPHIL COUNT DECREASED [None]
  - SEPSIS [None]
